FAERS Safety Report 10282078 (Version 1)
Quarter: 2014Q3

REPORT INFORMATION
  Report Type: Spontaneous
  Country: US (occurrence: US)
  Receive Date: 20140707
  Receipt Date: 20140707
  Transmission Date: 20150326
  Serious: No
  Sender: FDA-Public Use
  Company Number: US-SA-2014SA007226

PATIENT

DRUGS (1)
  1. PRIFTIN [Suspect]
     Active Substance: RIFAPENTINE

REACTIONS (1)
  - Drug dose omission [Unknown]
